FAERS Safety Report 7321050-1 (Version None)
Quarter: 2011Q1

REPORT INFORMATION
  Report Type: 
  Country: None (occurrence: None)
  Receive Date: 20110223
  Receipt Date: 20110223
  Transmission Date: 20110831
  Serious: Yes (Other)
  Sender: FDA-Public Use
  Company Number: None

PATIENT
  Age: 48 Year
  Sex: Male
  Weight: 70.3075 kg

DRUGS (1)
  1. LOSARTAN POTASSIUM [Suspect]
     Indication: HYPERTENSION
     Dosage: 25 MG 3 TIMES DAILY PO
     Route: 048
     Dates: start: 20100701, end: 20101130

REACTIONS (8)
  - ANXIETY [None]
  - FATIGUE [None]
  - HOT FLUSH [None]
  - INSOMNIA [None]
  - HEADACHE [None]
  - BLOOD PRESSURE ABNORMAL [None]
  - PALPITATIONS [None]
  - FEELING ABNORMAL [None]
